FAERS Safety Report 8802222 (Version 2)
Quarter: 2015Q2

REPORT INFORMATION
  Report Type: Report from Study
  Country: US (occurrence: US)
  Receive Date: 20120921
  Receipt Date: 20150630
  Transmission Date: 20150821
  Serious: Yes (Death)
  Sender: FDA-Public Use
  Company Number: US-ROCHE-1129313

PATIENT
  Sex: Female

DRUGS (36)
  1. AVASTIN [Suspect]
     Active Substance: BEVACIZUMAB
     Route: 042
  2. ACTIVASE [Concomitant]
     Active Substance: ALTEPLASE
     Route: 065
  3. INSULIN [Concomitant]
     Active Substance: INSULIN NOS
     Dosage: 70/30 10 (UNIT NOT REPORTED)
     Route: 065
  4. NEULASTA [Concomitant]
     Active Substance: PEGFILGRASTIM
     Route: 058
  5. PHENERGAN [Concomitant]
     Active Substance: PROMETHAZINE HYDROCHLORIDE
  6. MAXZIDE [Concomitant]
     Active Substance: HYDROCHLOROTHIAZIDE\TRIAMTERENE
     Route: 065
  7. AVANDARYL [Concomitant]
     Active Substance: GLIMEPIRIDE\ROSIGLITAZONE MALEATE
     Dosage: 1 TAB
     Route: 065
  8. ARANESP [Concomitant]
     Active Substance: DARBEPOETIN ALFA
     Route: 065
  9. DIOVAN [Concomitant]
     Active Substance: VALSARTAN
     Route: 048
  10. LIPITOR [Concomitant]
     Active Substance: ATORVASTATIN CALCIUM
     Route: 065
  11. PROCARDIA XL [Concomitant]
     Active Substance: NIFEDIPINE
     Route: 065
  12. LOTREL [Concomitant]
     Active Substance: AMLODIPINE BESYLATE\BENAZEPRIL HYDROCHLORIDE
     Dosage: 10/20 MG
     Route: 048
  13. ZANTAC [Concomitant]
     Active Substance: RANITIDINE HYDROCHLORIDE
     Route: 065
  14. NEUPOGEN [Concomitant]
     Active Substance: FILGRASTIM
     Route: 058
  15. ATENOLOL. [Concomitant]
     Active Substance: ATENOLOL
     Route: 065
  16. GEMZAR [Concomitant]
     Active Substance: GEMCITABINE HYDROCHLORIDE
     Route: 042
  17. CYMBALTA [Concomitant]
     Active Substance: DULOXETINE HYDROCHLORIDE
  18. FEMARA [Concomitant]
     Active Substance: LETROZOLE
     Route: 065
  19. TAXOL [Suspect]
     Active Substance: PACLITAXEL
     Indication: PRODUCT USED FOR UNKNOWN INDICATION
     Route: 065
  20. CARDURA [Concomitant]
     Active Substance: DOXAZOSIN MESYLATE
     Route: 065
  21. PEPCID [Concomitant]
     Active Substance: FAMOTIDINE
  22. AREDIA [Concomitant]
     Active Substance: PAMIDRONATE DISODIUM
  23. LEVAQUIN [Concomitant]
     Active Substance: LEVOFLOXACIN
  24. DEXAMETHASONE. [Concomitant]
     Active Substance: DEXAMETHASONE
     Route: 065
  25. BENADRYL [Concomitant]
     Active Substance: DIPHENHYDRAMINE HYDROCHLORIDE
     Route: 042
  26. HEPARIN [Concomitant]
     Active Substance: HEPARIN SODIUM
  27. KYTRIL [Concomitant]
     Active Substance: GRANISETRON HYDROCHLORIDE
     Route: 048
  28. TEKTURNA [Concomitant]
     Active Substance: ALISKIREN HEMIFUMARATE
     Route: 065
  29. ONDANSETRON [Concomitant]
     Active Substance: ONDANSETRON
     Route: 042
  30. AVASTIN [Suspect]
     Active Substance: BEVACIZUMAB
     Indication: BREAST CANCER FEMALE
     Route: 042
     Dates: start: 20060830
  31. PALONOSETRON [Concomitant]
     Active Substance: PALONOSETRON
     Route: 042
  32. PAMIDRONATE [Concomitant]
     Active Substance: PAMIDRONATE DISODIUM
     Route: 042
  33. ALOXI [Concomitant]
     Active Substance: PALONOSETRON HYDROCHLORIDE
     Route: 065
  34. DARBEPOETIN ALFA [Concomitant]
     Active Substance: DARBEPOETIN ALFA
     Route: 042
  35. LYRICA [Concomitant]
     Active Substance: PREGABALIN
     Route: 048
  36. ARIMIDEX [Concomitant]
     Active Substance: ANASTROZOLE
     Route: 048

REACTIONS (25)
  - Fatigue [Unknown]
  - Off label use [Unknown]
  - Disease progression [Fatal]
  - Nausea [Unknown]
  - Erythema [Unknown]
  - Peroneal nerve palsy [Unknown]
  - Peripheral swelling [Unknown]
  - Rash [Unknown]
  - Local swelling [Recovering/Resolving]
  - Weight decreased [Unknown]
  - Conjunctival pallor [Unknown]
  - Gait disturbance [Unknown]
  - Splenomegaly [Unknown]
  - Epistaxis [Unknown]
  - Laryngitis [Recovering/Resolving]
  - Nail disorder [Unknown]
  - Decreased appetite [Unknown]
  - Pleural effusion [Unknown]
  - Pain in extremity [Unknown]
  - Neuropathy peripheral [Unknown]
  - Anaemia [Unknown]
  - Alopecia [Unknown]
  - Leukocytosis [Unknown]
  - Hypertension [Unknown]
  - Metastases to central nervous system [Unknown]
